FAERS Safety Report 7729309-0 (Version None)
Quarter: 2011Q3

REPORT INFORMATION
  Report Type: 
  Country: None (occurrence: None)
  Receive Date: 20110906
  Receipt Date: 20110822
  Transmission Date: 20111222
  Serious: Yes (Other)
  Sender: FDA-Public Use
  Company Number: US-ENDO PHARMACEUTICALS INC.-OPIR20110049

PATIENT
  Age: 34 Year
  Sex: Male

DRUGS (1)
  1. OPANA [Suspect]
     Indication: PAIN
     Dosage: UNK
     Route: 048
     Dates: start: 20070101

REACTIONS (2)
  - DRUG TOLERANCE [None]
  - DEPENDENCE [None]
